FAERS Safety Report 5100281-5 (Version None)
Quarter: 2006Q3

REPORT INFORMATION
  Report Type: 
  Country: None (occurrence: None)
  Receive Date: 20060731
  Receipt Date: 20060515
  Transmission Date: 20061208
  Serious: No
  Sender: FDA-Public Use
  Company Number: 2006PV013806

PATIENT
  Age: 59 Year
  Sex: Male
  Weight: 90.7194 kg

DRUGS (12)
  1. BYETTA [Suspect]
     Indication: DIABETES MELLITUS NON-INSULIN-DEPENDENT
     Dosage: 5 MCG;BID;SC
     Route: 058
     Dates: start: 20060406
  2. GLUCOTROL [Concomitant]
  3. LISINOPRIL [Concomitant]
  4. AVANDIA [Concomitant]
  5. ZOCOR [Concomitant]
  6. ZETIA [Concomitant]
  7. ZIACAM [Concomitant]
  8. ZINC LOZENGES [Concomitant]
  9. CHROMIUM SUPPLEMENTS [Concomitant]
  10. MULTDIABETIC SUPPLEMENT [Concomitant]
  11. FIBER CHROMIUM SUPPLEMENT [Concomitant]
  12. ALKA SELTZER COLD PLUS [Concomitant]

REACTIONS (8)
  - ABDOMINAL PAIN UPPER [None]
  - ARTHRALGIA [None]
  - CHEST PAIN [None]
  - DECREASED APPETITE [None]
  - EYE SWELLING [None]
  - JOINT SWELLING [None]
  - NASOPHARYNGITIS [None]
  - SWELLING FACE [None]
